FAERS Safety Report 24124339 (Version 1)
Quarter: 2024Q3

REPORT INFORMATION
  Report Type: Spontaneous
  Country: CN (occurrence: CN)
  Receive Date: 20240723
  Receipt Date: 20240723
  Transmission Date: 20241016
  Serious: Yes (Other)
  Sender: CHEPLAPHARM
  Company Number: CN-CHEPLA-2024009048

PATIENT
  Age: 65 Year
  Sex: Male

DRUGS (16)
  1. CAPECITABINE [Suspect]
     Active Substance: CAPECITABINE
     Indication: Colorectal cancer
     Dosage: BID D1?14 (Q3W)?DAILY DOSE: 3000 MILLIGRAM
     Dates: start: 20190720
  2. CAPECITABINE [Suspect]
     Active Substance: CAPECITABINE
     Indication: Colorectal cancer
     Dosage: BID D1?14 (Q3W)?DAILY DOSE: 3000 MILLIGRAM
     Dates: start: 20210817
  3. CAPECITABINE [Suspect]
     Active Substance: CAPECITABINE
     Indication: Colorectal cancer
     Dosage: BID D1?14 (Q3W)?DAILY DOSE: 3000 MILLIGRAM
     Dates: start: 20210907
  4. CAPECITABINE [Suspect]
     Active Substance: CAPECITABINE
     Indication: Colorectal cancer
     Dosage: BID D1?14 (Q3W)?DAILY DOSE: 3000 MILLIGRAM
     Dates: start: 20210928
  5. CAPECITABINE [Suspect]
     Active Substance: CAPECITABINE
     Indication: Colorectal cancer
     Dosage: BID D1?14 (Q3W)?DAILY DOSE: 3000 MILLIGRAM
     Dates: start: 20211019
  6. CAPECITABINE [Suspect]
     Active Substance: CAPECITABINE
     Indication: Colorectal cancer
     Dosage: BID D1?14 (Q3W)?DAILY DOSE: 3000 MILLIGRAM
     Dates: start: 20211116
  7. CAPECITABINE [Suspect]
     Active Substance: CAPECITABINE
     Indication: Colorectal cancer
     Dosage: BID D1?14 (Q3W)?DAILY DOSE: 3000 MILLIGRAM
     Dates: start: 20211207
  8. CAPECITABINE [Suspect]
     Active Substance: CAPECITABINE
     Indication: Colorectal cancer
     Dosage: BID D1?14 (Q3W)?DAILY DOSE: 3000 MILLIGRAM
     Dates: start: 20211228
  9. OXALIPLATIN [Suspect]
     Active Substance: OXALIPLATIN
     Indication: Colorectal cancer
     Dosage: IVGTT D1 (Q3W) ?DAILY DOSE: 200 MILLIGRAM
     Route: 042
     Dates: start: 20210720
  10. OXALIPLATIN [Suspect]
     Active Substance: OXALIPLATIN
     Indication: Colorectal cancer
     Dosage: IVGTT D1 (Q3W) ?DAILY DOSE: 200 MILLIGRAM
     Route: 042
     Dates: start: 20210817
  11. OXALIPLATIN [Suspect]
     Active Substance: OXALIPLATIN
     Indication: Colorectal cancer
     Dosage: IVGTT D1 (Q3W) ?DAILY DOSE: 200 MILLIGRAM
     Route: 042
     Dates: start: 20210907
  12. OXALIPLATIN [Suspect]
     Active Substance: OXALIPLATIN
     Indication: Colorectal cancer
     Dosage: IVGTT D1 (Q3W) ?DAILY DOSE: 200 MILLIGRAM
     Route: 042
     Dates: start: 20210928
  13. OXALIPLATIN [Suspect]
     Active Substance: OXALIPLATIN
     Indication: Colorectal cancer
     Dosage: IVGTT D1 (Q3W) ?DAILY DOSE: 200 MILLIGRAM
     Route: 042
     Dates: start: 20211019
  14. OXALIPLATIN [Suspect]
     Active Substance: OXALIPLATIN
     Indication: Colorectal cancer
     Dosage: IVGTT D1 (Q3W) ?DAILY DOSE: 200 MILLIGRAM
     Route: 042
     Dates: start: 20211116
  15. OXALIPLATIN [Suspect]
     Active Substance: OXALIPLATIN
     Indication: Colorectal cancer
     Dosage: IVGTT D1 (Q3W) ?DAILY DOSE: 200 MILLIGRAM
     Route: 042
     Dates: start: 20211207
  16. OXALIPLATIN [Suspect]
     Active Substance: OXALIPLATIN
     Indication: Colorectal cancer
     Dosage: IVGTT D1 (Q3W) ?DAILY DOSE: 200 MILLIGRAM
     Route: 042
     Dates: start: 20211228

REACTIONS (1)
  - Ascites [Recovered/Resolved]
